FAERS Safety Report 24690825 (Version 1)
Quarter: 2024Q4

REPORT INFORMATION
  Report Type: Spontaneous
  Country: IT (occurrence: IT)
  Receive Date: 20241203
  Receipt Date: 20241203
  Transmission Date: 20250114
  Serious: Yes (Other)
  Sender: GILEAD
  Company Number: IT-GILEAD-2024-0679680

PATIENT
  Age: 40 Year
  Sex: Female
  Weight: 95 kg

DRUGS (2)
  1. TRODELVY [Suspect]
     Active Substance: SACITUZUMAB GOVITECAN-HZIY
     Indication: Triple negative breast cancer
     Dosage: 10 MG/KG, DAY 1-8
     Route: 065
     Dates: start: 202210
  2. TRODELVY [Suspect]
     Active Substance: SACITUZUMAB GOVITECAN-HZIY
     Dosage: 7.5 MG/KG (3RD TREATMENT CYCLE TAKES SG AT A DOSE REDUCED TO 75%)
     Route: 065

REACTIONS (3)
  - Neutropenia [Unknown]
  - Diarrhoea [Recovered/Resolved]
  - Off label use [Recovered/Resolved]
